FAERS Safety Report 4576563-2 (Version None)
Quarter: 2005Q1

REPORT INFORMATION
  Report Type: 
  Country: None (occurrence: None)
  Receive Date: 20050119
  Receipt Date: 20041029
  Transmission Date: 20050727
  Serious: Yes (Hospitalization)
  Sender: FDA-Public Use
  Company Number: A03200302477

PATIENT
  Age: 51 Year
  Sex: Male
  Weight: 95.2554 kg

DRUGS (16)
  1. PLAVIX [Suspect]
     Indication: MYOCARDIAL INFARCTION
     Dosage: 75 MG QD - ORAL
     Route: 048
     Dates: start: 20030501, end: 20041017
  2. PLAVIX [Suspect]
     Indication: STENT PLACEMENT
     Dosage: 75 MG QD - ORAL
     Route: 048
     Dates: start: 20030501, end: 20041017
  3. ACETYLSALICYLIC ACID [Concomitant]
  4. OMEPRAZOLE [Concomitant]
  5. SERTRALINE HYDROCHLORIDE [Concomitant]
  6. ATENOLOL [Concomitant]
  7. GLIMEPIRIDE [Concomitant]
  8. INSULIN [Concomitant]
  9. COLESEVELAM HYDROCHLORIDE [Concomitant]
  10. RAMIPRIL [Concomitant]
  11. ESOMEPRAZOLE [Concomitant]
  12. DILTIAZEM HYDROCHLORIDE [Concomitant]
  13. RAMIPRIL [Concomitant]
  14. --EZETIMIBE [Concomitant]
  15. ROSIGLITAZONE MALEATE [Concomitant]
  16. ALBUTEROL [Concomitant]

REACTIONS (2)
  - GASTRIC ULCER HAEMORRHAGE [None]
  - HAEMATOCHEZIA [None]
